FAERS Safety Report 6774796-8 (Version None)
Quarter: 2010Q2

REPORT INFORMATION
  Report Type: 
  Country: None (occurrence: None)
  Receive Date: 20100616
  Receipt Date: 20100616
  Transmission Date: 20101027
  Serious: Yes (Other)
  Sender: FDA-Public Use
  Company Number: None

PATIENT
  Age: 30 Year
  Sex: Female
  Weight: 83.0083 kg

DRUGS (1)
  1. ROCURONIUM 10MG/ML HOSPIRA [Suspect]
     Indication: GENERAL ANAESTHESIA
     Dosage: 20 MG ONCE IV
     Route: 042
     Dates: start: 20100528, end: 20100528

REACTIONS (1)
  - ASTHENIA [None]
